FAERS Safety Report 9098921 (Version 1)
Quarter: 2013Q1

REPORT INFORMATION
  Report Type: Report from Study
  Country: JP (occurrence: JP)
  Receive Date: 20130214
  Receipt Date: 20130214
  Transmission Date: 20140127
  Serious: Yes (Other)
  Sender: FDA-Public Use
  Company Number: JP-GILEAD-2013-0069637

PATIENT
  Sex: Female

DRUGS (8)
  1. AMBRISENTAN [Suspect]
     Indication: PULMONARY ARTERIAL HYPERTENSION
  2. REVATIO [Concomitant]
     Indication: PULMONARY ARTERIAL HYPERTENSION
     Dosage: 5 MG, QD
     Route: 048
     Dates: start: 20111101, end: 20111206
  3. REVATIO [Concomitant]
     Dosage: 2.5 MG, QD
     Route: 048
     Dates: start: 20111004, end: 20111031
  4. TRACLEER                           /01587701/ [Concomitant]
     Indication: PULMONARY ARTERIAL HYPERTENSION
  5. CARELOAD [Concomitant]
     Indication: PULMONARY ARTERIAL HYPERTENSION
     Route: 048
  6. BERAPROST SODIUM [Concomitant]
     Indication: PULMONARY ARTERIAL HYPERTENSION
     Route: 048
  7. WARFARIN [Concomitant]
     Indication: PROPHYLAXIS
     Route: 048
  8. LUPRAC [Concomitant]
     Indication: PROPHYLAXIS
     Route: 048

REACTIONS (2)
  - Urinary retention [Recovered/Resolved]
  - Malaise [Recovered/Resolved]
